FAERS Safety Report 16934407 (Version 2)
Quarter: 2020Q1

REPORT INFORMATION
  Report Type: Spontaneous
  Country: HU (occurrence: HU)
  Receive Date: 20191018
  Receipt Date: 20200210
  Transmission Date: 20200409
  Serious: Yes (Death, Other)
  Sender: FDA-Public Use
  Company Number: NVSC2019HU006008

PATIENT
  Age: 75 Year
  Sex: Female

DRUGS (3)
  1. VOTRIENT [Suspect]
     Active Substance: PAZOPANIB HYDROCHLORIDE
     Indication: METASTATIC RENAL CELL CARCINOMA
     Dosage: UNK
     Route: 065
     Dates: start: 201502
  2. VOTRIENT [Suspect]
     Active Substance: PAZOPANIB HYDROCHLORIDE
     Dosage: 400 MG, QD
     Route: 065
  3. VOTRIENT [Suspect]
     Active Substance: PAZOPANIB HYDROCHLORIDE
     Dosage: 800 MG, QD
     Route: 065
     Dates: start: 201901

REACTIONS (11)
  - Atrial fibrillation [Fatal]
  - Ejection fraction decreased [Unknown]
  - Cardiac failure [Fatal]
  - Cardiac dysfunction [Unknown]
  - Tumour thrombosis [Unknown]
  - Atrial thrombosis [Unknown]
  - General physical health deterioration [Unknown]
  - Blood pressure increased [Unknown]
  - Diarrhoea [Unknown]
  - Renal cancer recurrent [Unknown]
  - Hyperkeratosis [Unknown]
